FAERS Safety Report 12313483 (Version 1)
Quarter: 2016Q2

REPORT INFORMATION
  Report Type: Spontaneous
  Country: US (occurrence: None)
  Receive Date: 20160427
  Receipt Date: 20160427
  Transmission Date: 20160815
  Serious: Yes (Hospitalization)
  Sender: FDA-Public Use
  Company Number: None

PATIENT
  Age: 56 Year
  Sex: Female
  Weight: 68.6 kg

DRUGS (15)
  1. MELATONIN [Concomitant]
     Active Substance: MELATONIN
  2. BACTRIM [Concomitant]
     Active Substance: SULFAMETHOXAZOLE\TRIMETHOPRIM
  3. MYCOPHENOLATE [Concomitant]
     Active Substance: MYCOPHENOLIC ACID
  4. MEPRON [Concomitant]
     Active Substance: ATOVAQUONE
  5. ASPIRIN. [Concomitant]
     Active Substance: ASPIRIN
  6. COMPAZINE [Concomitant]
     Active Substance: PROCHLORPERAZINE MALEATE
  7. AMBIEN [Concomitant]
     Active Substance: ZOLPIDEM TARTRATE
  8. PREDNISONE. [Concomitant]
     Active Substance: PREDNISONE
  9. TACROLIMUS. [Concomitant]
     Active Substance: TACROLIMUS
  10. OYSCO D [Concomitant]
  11. MAGNESIUM OXIDE. [Concomitant]
     Active Substance: MAGNESIUM OXIDE
  12. SOVALDI [Suspect]
     Active Substance: SOFOSBUVIR
     Indication: HEPATITIS C VIRUS TEST POSITIVE
     Route: 048
     Dates: start: 20160305
  13. VALCYTE [Concomitant]
     Active Substance: VALGANCICLOVIR HYDROCHLORIDE
  14. DAKLINZA [Suspect]
     Active Substance: DACLATASVIR
     Indication: HEPATITIS C VIRUS TEST POSITIVE
     Route: 048
     Dates: start: 20160305
  15. AMBRISENTAN [Concomitant]
     Active Substance: AMBRISENTAN

REACTIONS (3)
  - Neutropenia [None]
  - Liver function test increased [None]
  - Back pain [None]

NARRATIVE: CASE EVENT DATE: 20160419
